FAERS Safety Report 24105041 (Version 1)
Quarter: 2024Q3

REPORT INFORMATION
  Report Type: Spontaneous
  Country: BR (occurrence: BR)
  Receive Date: 20240717
  Receipt Date: 20240717
  Transmission Date: 20241016
  Serious: Yes (Other)
  Sender: PFIZER
  Company Number: BR-PFIZER INC-PV202400091765

PATIENT
  Age: 58 Year
  Sex: Female

DRUGS (9)
  1. TALIGLUCERASE ALFA [Suspect]
     Active Substance: TALIGLUCERASE ALFA
     Indication: Gaucher^s disease
     Dosage: 22 IU/KG EVERY 15 DAYS
     Route: 042
     Dates: start: 20220908
  2. ALENDRONATE [Concomitant]
     Active Substance: ALENDRONATE SODIUM
     Dosage: UNK
  3. CHOLECALCIFEROL [Concomitant]
     Active Substance: CHOLECALCIFEROL
     Dosage: UNK
  4. VITAMIN D NOS [Concomitant]
     Active Substance: CHOLECALCIFEROL\ERGOCALCIFEROL
     Dosage: UNK
  5. OMEPRAZOLE [Concomitant]
     Active Substance: OMEPRAZOLE
     Dosage: UNK
  6. CALCIUM [Concomitant]
     Active Substance: CALCIUM
     Dosage: UNK
  7. CLOBAZAM [Concomitant]
     Active Substance: CLOBAZAM
     Dosage: UNK
  8. LEVETIRACETAM [Concomitant]
     Active Substance: LEVETIRACETAM
     Dosage: UNK
  9. PREGABALIN [Concomitant]
     Active Substance: PREGABALIN
     Dosage: UNK

REACTIONS (5)
  - Spinal fracture [Unknown]
  - Neoplasm [Unknown]
  - Pain [Unknown]
  - Fatigue [Unknown]
  - Off label use [Unknown]

NARRATIVE: CASE EVENT DATE: 20220908
